FAERS Safety Report 6190080-8 (Version None)
Quarter: 2009Q2

REPORT INFORMATION
  Report Type: 
  Country: None (occurrence: None)
  Receive Date: 20090514
  Receipt Date: 20090402
  Transmission Date: 20091009
  Serious: No
  Sender: FDA-Public Use
  Company Number: US-BAYER-200911065BCC

PATIENT
  Age: 79 Year
  Sex: Male
  Weight: 75 kg

DRUGS (5)
  1. ALEVE (CAPLET) [Suspect]
     Indication: ARTHRALGIA
     Dosage: TOTAL DAILY DOSE: 220 MG  UNIT DOSE: 220 MG
     Route: 048
     Dates: start: 20090316, end: 20090320
  2. NEXIUM [Concomitant]
     Indication: DRUG USE FOR UNKNOWN INDICATION
  3. DONEPEZIL HCL [Concomitant]
     Indication: DEMENTIA ALZHEIMER'S TYPE
  4. NAMENDA [Concomitant]
     Indication: DRUG USE FOR UNKNOWN INDICATION
  5. ADVIL [Concomitant]
     Indication: ARTHRALGIA
     Route: 048
     Dates: start: 20090323, end: 20090327

REACTIONS (1)
  - ARTHRALGIA [None]
